FAERS Safety Report 20297215 (Version 1)
Quarter: 2022Q1

REPORT INFORMATION
  Report Type: Spontaneous
  Country: US (occurrence: None)
  Receive Date: 20220105
  Receipt Date: 20220105
  Transmission Date: 20220423
  Serious: No
  Sender: FDA-Public Use
  Company Number: US-ROCHE-2826567

PATIENT
  Age: 49 Year
  Sex: Male
  Weight: 79.450 kg

DRUGS (1)
  1. HEMLIBRA [Suspect]
     Active Substance: EMICIZUMAB-KXWH
     Indication: Haemophilia
     Route: 058
     Dates: start: 20200622

REACTIONS (1)
  - Activated partial thromboplastin time abnormal [Not Recovered/Not Resolved]

NARRATIVE: CASE EVENT DATE: 20210413
